FAERS Safety Report 7277319-2 (Version None)
Quarter: 2010Q4

REPORT INFORMATION
  Report Type: 
  Country: None (occurrence: None)
  Receive Date: 20101201
  Receipt Date: 20100823
  Transmission Date: 20110411
  Serious: Yes (Hospitalization, Other)
  Sender: FDA-Public Use
  Company Number: 313661

PATIENT
  Age: 78 Year
  Sex: Female
  Weight: 62.6 kg

DRUGS (9)
  1. NOVOLOG [Suspect]
     Indication: TYPE 2 DIABETES MELLITUS
     Dosage: 25 IU, QD, SUBCUTAN.-PUMP
     Route: 058
     Dates: start: 20070101
  2. POTASSIUM (POTASSIUM) [Concomitant]
  3. LIPITOR [Concomitant]
  4. DIGOXEN (DIGOXIN) [Concomitant]
  5. ZETIA [Concomitant]
  6. METOPROLOL SUCCINATE [Concomitant]
  7. WARFARIN (WARFARIN) [Concomitant]
  8. IMDUR [Concomitant]
  9. FUROSEMIDE [Concomitant]

REACTIONS (7)
  - ASTHENIA [None]
  - BLOOD GLUCOSE DECREASED [None]
  - BLOOD GLUCOSE INCREASED [None]
  - DECREASED APPETITE [None]
  - DIARRHOEA [None]
  - FATIGUE [None]
  - INCORRECT PRODUCT STORAGE [None]
